FAERS Safety Report 5143327-0 (Version None)
Quarter: 2006Q4

REPORT INFORMATION
  Report Type: 
  Country: None (occurrence: None)
  Receive Date: 20061030
  Receipt Date: 20061017
  Transmission Date: 20070319
  Serious: Yes (Other)
  Sender: FDA-Public Use
  Company Number: 2006127441

PATIENT
  Sex: Female

DRUGS (2)
  1. VIRACEPT [Suspect]
     Dosage: 2500 MG, ORAL
     Route: 048
  2. COMBIVIR [Suspect]
     Dosage: 2 TABLETS, ORAL
     Route: 048

REACTIONS (3)
  - ABORTION INDUCED [None]
  - DEPRESSION [None]
  - DRUG EXPOSURE DURING PREGNANCY [None]
